FAERS Safety Report 18952351 (Version 1)
Quarter: 2021Q1

REPORT INFORMATION
  Report Type: Report from Study
  Country: None (occurrence: US)
  Receive Date: 20210301
  Receipt Date: 20210301
  Transmission Date: 20210420
  Serious: Yes (Hospitalization)
  Sender: FDA-Public Use
  Company Number: US-ABBVIE-21K-163-3791458-00

PATIENT
  Sex: Male

DRUGS (2)
  1. VENCLEXTA [Suspect]
     Active Substance: VENETOCLAX
     Dosage: ONE TABLET OF 50MG PLUS TWO 10MG TABLETS DAILY FOR SEVEN DAYS IN EACH MONTH
     Route: 048
  2. VENCLEXTA [Suspect]
     Active Substance: VENETOCLAX
     Indication: ACUTE MYELOID LEUKAEMIA (IN REMISSION)
     Dosage: ONE TABLET OF 50MG PLUS TWO 10MG TABLETS DAILY FOR SEVEN DAYS IN EACH MONTH
     Route: 048

REACTIONS (2)
  - Weight increased [Unknown]
  - Fluid retention [Unknown]
